FAERS Safety Report 8458702-6 (Version None)
Quarter: 2012Q2

REPORT INFORMATION
  Report Type: 
  Country: None (occurrence: None)
  Receive Date: 20120615
  Receipt Date: 20120606
  Transmission Date: 20120825
  Serious: Yes (Life-Threatening)
  Sender: FDA-Public Use
  Company Number: 1314096

PATIENT
  Age: 68 Year
  Sex: Male

DRUGS (10)
  1. (FLUID) [Concomitant]
  2. SITAGLIPTIN [Concomitant]
  3. METOPROLOL TARTRATE [Concomitant]
  4. GLIPIZIDE [Concomitant]
  5. METFORMIN HCL [Concomitant]
  6. EPINEPHRINE [Suspect]
     Indication: ANAPHYLACTIC REACTION
     Dosage: 0.3 MG, INTRAMUSCULAR
     Route: 030
  7. DIPHENHYDRAMINE HCL [Concomitant]
  8. ATORVASTATIN [Concomitant]
  9. RAMIPRIL [Concomitant]
  10. ASPIRIN [Concomitant]

REACTIONS (8)
  - C1 ESTERASE INHIBITOR DECREASED [None]
  - EXTRASYSTOLES [None]
  - ELECTROCARDIOGRAM ST SEGMENT DEPRESSION [None]
  - TACHYCARDIA [None]
  - TRYPTASE INCREASED [None]
  - TROPONIN I INCREASED [None]
  - HEART RATE DECREASED [None]
  - CORONARY ARTERY THROMBOSIS [None]
